FAERS Safety Report 4286486-4 (Version None)
Quarter: 2004Q1

REPORT INFORMATION
  Report Type: 
  Country: None (occurrence: None)
  Receive Date: 20040204
  Receipt Date: 20040122
  Transmission Date: 20041129
  Serious: Yes (Hospitalization)
  Sender: FDA-Public Use
  Company Number: 235020

PATIENT
  Age: 74 Year
  Sex: Female
  Weight: 80.7 kg

DRUGS (5)
  1. NOVOLOG [Suspect]
     Indication: INCREASED INSULIN REQUIREMENT
     Dosage: 12 IU,QD, SUBCUTANEOUS
     Route: 058
     Dates: start: 20030101, end: 20031220
  2. NOVOLOG [Suspect]
     Indication: INCREASED INSULIN REQUIREMENT
     Dosage: 12 IU,QD, SUBCUTANEOUS
     Route: 058
     Dates: start: 20040106
  3. LANTUS [Concomitant]
  4. MAXZIDE [Concomitant]
  5. TRIAMTERENE (TRIAMTERENE) [Concomitant]

REACTIONS (4)
  - BLOOD GLUCOSE FLUCTUATION [None]
  - BLOOD GLUCOSE INCREASED [None]
  - DRUG INEFFECTIVE [None]
  - PNEUMONIA [None]
